FAERS Safety Report 6405273-1 (Version None)
Quarter: 2009Q4

REPORT INFORMATION
  Report Type: 
  Country: None (occurrence: None)
  Receive Date: 20091016
  Receipt Date: 20091016
  Transmission Date: 20100525
  Serious: Yes (Hospitalization, Disabling)
  Sender: FDA-Public Use
  Company Number: None

PATIENT
  Sex: Male
  Weight: 81.6475 kg

DRUGS (1)
  1. PROCHLORPERAZINE  10 MG [Suspect]
     Indication: NAUSEA
     Dosage: 10 MG/1 PILL 6 HOURS ORAL
     Route: 048
     Dates: start: 20090906, end: 20090911

REACTIONS (3)
  - AGEUSIA [None]
  - ASTHENIA [None]
  - MUSCLE SPASMS [None]
